FAERS Safety Report 16641960 (Version 1)
Quarter: 2019Q3

REPORT INFORMATION
  Report Type: Spontaneous
  Country: FR (occurrence: FR)
  Receive Date: 20190729
  Receipt Date: 20190729
  Transmission Date: 20191004
  Serious: Yes (Other)
  Sender: FDA-Public Use
  Company Number: FR-PFIZER INC-2019314591

PATIENT
  Age: 37 Year
  Sex: Female
  Weight: 54 kg

DRUGS (7)
  1. FERVEX [ASCORBIC ACID;PARACETAMOL;PHENIRAMINE MALEATE] [Suspect]
     Active Substance: ACETAMINOPHEN\ASCORBIC ACID\PHENIRAMINE MALEATE
     Dosage: UNK
     Route: 048
     Dates: start: 2012, end: 201803
  2. CODEINE [Suspect]
     Active Substance: CODEINE
     Dosage: 600 MG, 1X/DAY
     Route: 048
     Dates: start: 2012, end: 201803
  3. DECONTRACTYL [MEPHENESIN;METHYL NICOTINATE] [Suspect]
     Active Substance: MEPHENESIN\METHYL NICOTINATE
     Dosage: UNK
     Route: 048
     Dates: start: 2012, end: 201803
  4. LUMIRELAX [METHOCARBAMOL] [Suspect]
     Active Substance: METHOCARBAMOL
     Dosage: UNK
     Route: 048
     Dates: start: 2012, end: 201803
  5. RHINADVIL [Suspect]
     Active Substance: IBUPROFEN\PSEUDOEPHEDRINE HYDROCHLORIDE
     Dosage: UNK
     Route: 048
     Dates: start: 2012, end: 201803
  6. TRAMADOL BASI [Suspect]
     Active Substance: TRAMADOL HYDROCHLORIDE
     Dosage: UNK
     Route: 048
     Dates: start: 2012, end: 201803
  7. DOLIRHUME PARACETAMOL ET PSEUDOEPHEDRINE [Suspect]
     Active Substance: ACETAMINOPHEN\PSEUDOEPHEDRINE
     Dosage: UNK
     Route: 048
     Dates: start: 2012, end: 201803

REACTIONS (2)
  - Dependence [Recovered/Resolved]
  - Drug abuse [Recovered/Resolved]

NARRATIVE: CASE EVENT DATE: 2012
